FAERS Safety Report 6383441-5 (Version None)
Quarter: 2009Q3

REPORT INFORMATION
  Report Type: 
  Country: None (occurrence: None)
  Receive Date: 20090929
  Receipt Date: 20090929
  Transmission Date: 20100115
  Serious: Yes (Hospitalization)
  Sender: FDA-Public Use
  Company Number: None

PATIENT
  Sex: Male
  Weight: 14.9 kg

DRUGS (8)
  1. CARBOPLATIN [Suspect]
     Dosage: 1140 MG
  2. CISPLATIN [Suspect]
     Dosage: 258 MG
  3. CYCLOPHOSPHAMIDE [Suspect]
     Dosage: 7836 MG
  4. DOXORUBICIN HCL [Suspect]
     Dosage: 95.4 MG
  5. ETOPOSIDE [Suspect]
     Dosage: 1694 MG
  6. MELPHALAN [Suspect]
     Dosage: 141 MG
  7. MESNA [Suspect]
     Dosage: 3180 MG
  8. TOPOTECAN [Suspect]
     Dosage: 7.65 MG

REACTIONS (17)
  - AORTIC DILATATION [None]
  - CANDIDIASIS [None]
  - CENTRAL LINE INFECTION [None]
  - CONTINUOUS HAEMODIAFILTRATION [None]
  - FLUID OVERLOAD [None]
  - GASTROINTESTINAL HAEMORRHAGE [None]
  - KAWASAKI'S DISEASE [None]
  - METABOLIC ACIDOSIS [None]
  - MULTI-ORGAN FAILURE [None]
  - NO THERAPEUTIC RESPONSE [None]
  - PANCYTOPENIA [None]
  - RENAL FAILURE [None]
  - RESPIRATORY DISTRESS [None]
  - SEPTIC SHOCK [None]
  - STAPHYLOCOCCAL INFECTION [None]
  - STEM CELL TRANSPLANT [None]
  - VENOOCCLUSIVE DISEASE [None]
